FAERS Safety Report 9398534 (Version 1)
Quarter: 2013Q3

REPORT INFORMATION
  Report Type: Spontaneous
  Country: CA (occurrence: CA)
  Receive Date: 20130712
  Receipt Date: 20130712
  Transmission Date: 20140515
  Serious: Yes (Hospitalization, Other)
  Sender: FDA-Public Use
  Company Number: CA-AMGEN-CANSP2013006219

PATIENT
  Age: 81 Year
  Sex: Female
  Weight: 77.27 kg

DRUGS (1)
  1. PROLIA [Suspect]
     Indication: OSTEOPOROSIS POSTMENOPAUSAL
     Dosage: 60 MG, UNK
     Route: 058
     Dates: start: 20120731

REACTIONS (13)
  - Bladder neoplasm [Unknown]
  - Hospitalisation [Unknown]
  - Malaise [Unknown]
  - Vomiting [Not Recovered/Not Resolved]
  - Diarrhoea [Not Recovered/Not Resolved]
  - Local swelling [Unknown]
  - Influenza [Recovered/Resolved]
  - Dyspnoea [Not Recovered/Not Resolved]
  - Cough [Recovered/Resolved]
  - Cataract [Unknown]
  - Faeces discoloured [Unknown]
  - Chromaturia [Unknown]
  - Renal disorder [Unknown]
